FAERS Safety Report 15863082 (Version 2)
Quarter: 2019Q1

REPORT INFORMATION
  Report Type: Spontaneous
  Country: US (occurrence: US)
  Receive Date: 20190124
  Receipt Date: 20190212
  Transmission Date: 20190417
  Serious: Yes (Other)
  Sender: FDA-Public Use
  Company Number: US-GLAXOSMITHKLINE-US2019GSK008673

PATIENT
  Sex: Female

DRUGS (1)
  1. BENLYSTA [Suspect]
     Active Substance: BELIMUMAB
     Indication: SYSTEMIC LUPUS ERYTHEMATOSUS
     Dosage: UNK
     Route: 058
     Dates: start: 20190115

REACTIONS (7)
  - Systemic lupus erythematosus [Unknown]
  - Product dose omission [Unknown]
  - Product distribution issue [Unknown]
  - Skin exfoliation [Unknown]
  - Tongue disorder [Unknown]
  - Fatigue [Unknown]
  - Erythema [Unknown]
